FAERS Safety Report 8248202-0 (Version None)
Quarter: 2012Q1

REPORT INFORMATION
  Report Type: 
  Country: None (occurrence: None)
  Receive Date: 20120330
  Receipt Date: 20120326
  Transmission Date: 20120608
  Serious: Yes (Other)
  Sender: FDA-Public Use
  Company Number: BR-ABBOTT-12P-020-0918984-00

PATIENT
  Sex: Female
  Weight: 62 kg

DRUGS (15)
  1. AKINETON [Suspect]
     Indication: SPEECH DISORDER
  2. AKINETON [Suspect]
  3. AKINETON 2MG [Suspect]
     Indication: PROPHYLAXIS
  4. AKINETON 2MG [Suspect]
  5. HALDOL [Concomitant]
     Indication: ANXIOLYTIC THERAPY
  6. PHENERGAN [Concomitant]
     Indication: DRUG HYPERSENSITIVITY
     Dosage: AT NIGHT
     Route: 048
  7. AKINETON [Suspect]
     Indication: MUSCLE RIGIDITY
     Dosage: 1 TABLET IN THE MORNING
     Route: 048
  8. AKINETON [Suspect]
     Indication: ABASIA
  9. AKINETON [Suspect]
     Indication: PROPHYLAXIS
  10. AKINETON 2MG [Suspect]
     Indication: SPEECH DISORDER
  11. AKINETON 2MG [Suspect]
  12. AKINETON 2MG [Suspect]
     Indication: ABASIA
  13. AKINETON [Suspect]
  14. AKINETON 2MG [Suspect]
     Indication: MUSCLE RIGIDITY
     Dosage: 4 TABLETS IN THE MORNING
     Route: 048
  15. HALDOL [Concomitant]
     Indication: SLEEP DISORDER THERAPY
     Dosage: IN THE MORNING / AT NIGHT
     Route: 048

REACTIONS (3)
  - RENAL CANCER [None]
  - NODULE [None]
  - HYPERTENSION [None]
